FAERS Safety Report 20411869 (Version 5)
Quarter: 2023Q1

REPORT INFORMATION
  Report Type: Spontaneous
  Country: IN (occurrence: IN)
  Receive Date: 20220201
  Receipt Date: 20230125
  Transmission Date: 20230418
  Serious: Yes (Other)
  Sender: FDA-Public Use
  Company Number: IN-PFIZER INC-202200114562

PATIENT
  Age: 50 Year
  Sex: Female
  Weight: 79 kg

DRUGS (8)
  1. PALBOCICLIB [Suspect]
     Active Substance: PALBOCICLIB
     Indication: Breast cancer
     Dosage: 125 MG, CYCLIC (DAY 1 TO DAY 21 THEN 1 WEEK OFF, AFTER MEAL)
     Route: 048
     Dates: start: 20210413
  2. ZOLEDRONIC ACID [Concomitant]
     Active Substance: ZOLEDRONIC ACID
     Dosage: IN 100ML NS IV OVER 15 MINS
     Dates: start: 20210413
  3. ZOLEDRONIC ACID [Concomitant]
     Active Substance: ZOLEDRONIC ACID
     Dosage: 4 MG, MONTHLY IN 100ML NS OVER 15 MINS
     Route: 042
  4. LETROZOLE [Concomitant]
     Active Substance: LETROZOLE
     Dosage: AFTER MEAL
     Dates: start: 20210413
  5. LETROZOLE [Concomitant]
     Active Substance: LETROZOLE
     Dosage: UNK ,1X/DAY
  6. PREMARIN [Concomitant]
     Active Substance: ESTROGENS, CONJUGATED
     Indication: Vulvovaginal dryness
     Dosage: UNK
  7. PREMARIN [Concomitant]
     Active Substance: ESTROGENS, CONJUGATED
     Indication: Vulvovaginal pain
  8. LEVOTHYROXINE [Concomitant]
     Active Substance: LEVOTHYROXINE
     Dosage: 1 DF, 1X/DAY (EMPTY STOMACH)

REACTIONS (15)
  - Bronchiectasis [Unknown]
  - Full blood count abnormal [Unknown]
  - Sinusitis [Unknown]
  - Thyroid disorder [Unknown]
  - Cervix disorder [Unknown]
  - Lymphadenopathy [Unknown]
  - Cholelithiasis [Unknown]
  - Vulvovaginal dryness [Unknown]
  - Vulvovaginal pain [Unknown]
  - Weight decreased [Unknown]
  - Hepatic steatosis [Unknown]
  - Vulvovaginal discomfort [Unknown]
  - Heart rate increased [Unknown]
  - Osteosclerosis [Unknown]
  - White blood cell count decreased [Unknown]

NARRATIVE: CASE EVENT DATE: 20211008
